FAERS Safety Report 8202305-5 (Version None)
Quarter: 2012Q1

REPORT INFORMATION
  Report Type: 
  Country: None (occurrence: None)
  Receive Date: 20120308
  Receipt Date: 20120222
  Transmission Date: 20120608
  Serious: Yes (Congenital Anomaly)
  Sender: FDA-Public Use
  Company Number: UCM201202-000019

PATIENT

DRUGS (3)
  1. TOPIRAMATE [Suspect]
     Dosage: 400 MG, TRANSPLACENTAL
     Route: 064
  2. CARBAMAZEPINE [Suspect]
     Dosage: 1000 MG, TRANSPLACENTAL
     Route: 064
  3. PHENYTOIN [Suspect]
     Dosage: 500 MG, TRANSPLACENTAL
     Route: 064

REACTIONS (7)
  - LUNG DISORDER [None]
  - SYNDACTYLY [None]
  - MULTIPLE CONGENITAL ABNORMALITIES [None]
  - FOETAL DISORDER [None]
  - CARDIAC DISORDER [None]
  - NERVOUS SYSTEM DISORDER [None]
  - MATERNAL DRUGS AFFECTING FOETUS [None]
